FAERS Safety Report 6875679-5 (Version None)
Quarter: 2010Q3

REPORT INFORMATION
  Report Type: 
  Country: None (occurrence: None)
  Receive Date: 20100727
  Receipt Date: 20071107
  Transmission Date: 20110219
  Serious: Yes (Hospitalization, Other)
  Sender: FDA-Public Use
  Company Number: US-PFIZER INC-2006151229

PATIENT
  Weight: 88.9 kg

DRUGS (7)
  1. CELEBREX [Suspect]
     Indication: PAIN
     Dosage: 2 EVERY 2 DAYS
     Route: 048
     Dates: start: 20010101
  2. VIOXX [Suspect]
     Indication: PAIN
     Route: 048
     Dates: start: 20000126
  3. ALL OTHER THERAPEUTIC PRODUCTS [Concomitant]
     Dates: start: 19990512, end: 20050324
  4. PREDNISONE [Concomitant]
     Dates: start: 19991201, end: 20041221
  5. RELAFEN [Concomitant]
     Indication: PAIN
     Dates: start: 19991221, end: 20000622
  6. HYDROCODONE BITARTRATE [Concomitant]
     Indication: PAIN
     Dates: start: 20010227, end: 20040921
  7. MEPERIDINE HCL [Concomitant]
     Indication: PAIN
     Dates: start: 20001103, end: 20010216

REACTIONS (1)
  - MYOCARDIAL INFARCTION [None]
